FAERS Safety Report 7761460-1 (Version None)
Quarter: 2011Q3

REPORT INFORMATION
  Report Type: 
  Country: None (occurrence: None)
  Receive Date: 20110920
  Receipt Date: 20110908
  Transmission Date: 20111222
  Serious: Yes (Hospitalization)
  Sender: FDA-Public Use
  Company Number: AT-ELI_LILLY_AND_COMPANY-AT201109002022

PATIENT
  Age: 73 Year
  Sex: Male
  Weight: 74 kg

DRUGS (18)
  1. SOLUDACORTIN [Concomitant]
     Indication: PROPHYLAXIS
     Dosage: UNK
     Dates: start: 20110126, end: 20110126
  2. SCOPOLAMINE [Concomitant]
     Indication: PAIN
     Dosage: UNK
     Dates: start: 20110126, end: 20110126
  3. ASPIRIN [Concomitant]
     Indication: PROPHYLAXIS
     Dosage: UNK
     Dates: start: 20110125
  4. BISOPROLOL FUMARATE [Concomitant]
     Indication: HYPERTENSION
     Dosage: UNK
     Dates: start: 20110126
  5. ATORVASTATIN CALCIUM [Concomitant]
     Indication: HYPERLIPIDAEMIA
     Dosage: UNK
     Dates: start: 20110125
  6. ULSAL [Concomitant]
     Indication: PROPHYLAXIS
     Dosage: UNK
     Dates: start: 20110126, end: 20110126
  7. DEXTROSE [Concomitant]
     Dosage: 5 %, UNK
  8. PLACEBO [Suspect]
     Indication: ACUTE MYOCARDIAL INFARCTION
     Dosage: UNK UNK, SINGLE
     Route: 048
     Dates: start: 20110125, end: 20110125
  9. PANTOLOC                           /01263202/ [Concomitant]
     Dosage: UNK
     Dates: start: 20110126
  10. ACC                                /00082801/ [Concomitant]
     Indication: COUGH
     Dosage: UNK
     Dates: start: 20110125, end: 20110126
  11. FENISTIL [Concomitant]
     Indication: PROPHYLAXIS
     Dosage: UNK
     Dates: start: 20110126, end: 20110126
  12. HEPARIN [Concomitant]
     Indication: THROMBOSIS
     Dosage: UNK
     Dates: start: 20110125, end: 20110126
  13. PRASUGREL HYDROCHLORIDE [Suspect]
     Indication: ACUTE MYOCARDIAL INFARCTION
     Dosage: 60 MG, SINGLE
     Route: 048
     Dates: start: 20110126, end: 20110126
  14. NATRIUM BICARBONAT [Concomitant]
     Dosage: UNK
     Dates: start: 20110126, end: 20110126
  15. PRASUGREL HYDROCHLORIDE [Suspect]
     Dosage: 10 MG, QD
     Route: 048
     Dates: start: 20110127
  16. RINGER'S [Concomitant]
     Dosage: UNK
     Dates: start: 20110125, end: 20110125
  17. ALPRAZOLAM [Concomitant]
     Indication: INSOMNIA
     Dosage: UNK
     Dates: start: 20110127, end: 20110127
  18. PERLINGANIT [Concomitant]
     Indication: ACUTE CORONARY SYNDROME
     Dosage: UNK
     Dates: start: 20110126, end: 20110126

REACTIONS (1)
  - FAECES DISCOLOURED [None]
